FAERS Safety Report 24293654 (Version 1)
Quarter: 2024Q3

REPORT INFORMATION
  Report Type: Spontaneous
  Country: US (occurrence: None)
  Receive Date: 20240906
  Receipt Date: 20240906
  Transmission Date: 20241016
  Serious: No
  Sender: DOMPE FARMACEUTICI
  Company Number: US-FARMAPROD-202308-202402-0444

PATIENT
  Age: 68 Year
  Sex: Female
  Weight: 53.52 kg

DRUGS (13)
  1. OXERVATE [Suspect]
     Active Substance: CENEGERMIN-BKBJ
     Indication: Neurotrophic keratopathy
     Route: 047
     Dates: start: 20240207, end: 20240207
  2. OXERVATE [Suspect]
     Active Substance: CENEGERMIN-BKBJ
     Indication: Hypoaesthesia eye
  3. FISH OIL [Concomitant]
     Active Substance: FISH OIL
     Dosage: 1000-210MG
  4. VITAMIN C [Concomitant]
     Active Substance: ASCORBIC ACID
  5. IBUPROFEN [Concomitant]
     Active Substance: IBUPROFEN
     Dosage: AT BED TIME
  6. CENTRUM WOMEN 50 PLUS MINIS [Concomitant]
  7. CITRACAL-D3 PLUS MAGNESIUM [Concomitant]
  8. CALCIUM\CHOLECALCIFEROL [Concomitant]
     Active Substance: CALCIUM\CHOLECALCIFEROL
  9. PREDNISOLONE-BROMFENAC [Concomitant]
  10. ALPHAGAN P [Concomitant]
     Active Substance: BRIMONIDINE TARTRATE
  11. REFRESH LUBRICANT [Concomitant]
  12. PREDNISONE [Concomitant]
     Active Substance: PREDNISONE
  13. FISH OIL [Concomitant]
     Active Substance: FISH OIL

REACTIONS (6)
  - Sinus pain [Recovering/Resolving]
  - Erythema [Recovering/Resolving]
  - Sinus operation [Recovering/Resolving]
  - Vision blurred [Unknown]
  - Ocular hyperaemia [Unknown]
  - Blister [Unknown]

NARRATIVE: CASE EVENT DATE: 20240207
